FAERS Safety Report 9442958 (Version 1)
Quarter: 2013Q3

REPORT INFORMATION
  Report Type: Spontaneous
  Country: US (occurrence: US)
  Receive Date: 20130806
  Receipt Date: 20130806
  Transmission Date: 20140515
  Serious: Yes (Hospitalization)
  Sender: FDA-Public Use
  Company Number: US-VIROPHARMA INCORPORATED-20130725CINRY4699

PATIENT
  Age: 18 Year
  Sex: Female

DRUGS (10)
  1. CINRYZE (C1 ESTERASE INHIBITOR (HUMAN)) [Suspect]
     Indication: HEREDITARY ANGIOEDEMA
     Dosage: 1000-1500 UNITS
     Dates: start: 201010
  2. CINRYZE (C1 ESTERASE INHIBITOR (HUMAN)) [Suspect]
     Indication: PROPHYLAXIS
  3. ADDERALL [Concomitant]
     Indication: PRODUCT USED FOR UNKNOWN INDICATION
     Dosage: UNKNOWN
     Route: 065
  4. BERINERT [Concomitant]
     Indication: HEREDITARY ANGIOEDEMA
  5. NORETHINDRONE [Concomitant]
     Indication: MENSTRUAL CYCLE MANAGEMENT
     Route: 048
     Dates: end: 201307
  6. LYRICA [Concomitant]
     Indication: PAIN
     Route: 048
  7. LYRICA [Concomitant]
     Indication: MYOSITIS
  8. RANITIDINE [Concomitant]
     Indication: GASTROOESOPHAGEAL REFLUX DISEASE
     Route: 048
  9. VITAMIN D [Concomitant]
     Indication: PRODUCT USED FOR UNKNOWN INDICATION
     Route: 048
  10. DICLOFENAC [Concomitant]
     Indication: PAIN
     Route: 048

REACTIONS (3)
  - Deep vein thrombosis [Recovered/Resolved]
  - Pulmonary embolism [Recovered/Resolved]
  - Hereditary angioedema [Unknown]
